FAERS Safety Report 6599945-6 (Version None)
Quarter: 2010Q1

REPORT INFORMATION
  Report Type: 
  Country: None (occurrence: None)
  Receive Date: 20100217
  Receipt Date: 20100125
  Transmission Date: 20100710
  Serious: Yes (Hospitalization)
  Sender: FDA-Public Use
  Company Number: 1000011613

PATIENT
  Age: 41 Year
  Sex: Female

DRUGS (2)
  1. ESCITALOPRAM [Suspect]
     Indication: DEPRESSION
     Dosage: 10 MG (10 MG, 1 IN 1 D), ORAL
     Route: 048
     Dates: start: 20090701, end: 20090812
  2. XANAX [Concomitant]

REACTIONS (3)
  - CYTOLYTIC HEPATITIS [None]
  - CYTOMEGALOVIRUS TEST POSITIVE [None]
  - HEPATOCELLULAR INJURY [None]
